FAERS Safety Report 25952065 (Version 1)
Quarter: 2025Q4

REPORT INFORMATION
  Report Type: Spontaneous
  Country: US (occurrence: None)
  Receive Date: 20251022
  Receipt Date: 20251022
  Transmission Date: 20260118
  Serious: No
  Sender: FDA-CTU
  Company Number: None

PATIENT
  Age: 57 Year
  Sex: Female

DRUGS (1)
  1. ADBRY [Suspect]
     Active Substance: TRALOKINUMAB-LDRM
     Indication: Dermatitis atopic
     Dosage: FREQUENCY : AS DIRECTED;?INJECT 600 MG ( 2 PENS) SQ ON DAY 1, THERN 300 MG (1 PEN) EVERY 2 WEEKS
     Route: 058

REACTIONS (1)
  - Neck surgery [None]

NARRATIVE: CASE EVENT DATE: 20251015
